FAERS Safety Report 16098356 (Version 1)
Quarter: 2019Q1

REPORT INFORMATION
  Report Type: Spontaneous
  Country: US (occurrence: US)
  Receive Date: 20190321
  Receipt Date: 20190321
  Transmission Date: 20190418
  Serious: Yes (Other)
  Sender: FDA-Public Use
  Company Number: US-AMGEN INC.-USASP2019043172

PATIENT
  Age: 57 Year
  Sex: Female

DRUGS (4)
  1. IMITREX [Concomitant]
     Active Substance: SUMATRIPTAN SUCCINATE
     Dosage: EVERY DAY, SOMETIMES TWICE PER DAY
  2. AIMOVIG [Suspect]
     Active Substance: ERENUMAB-AOOE
     Dosage: NOT ADMINISTERED
     Route: 065
  3. NAPROXEN. [Concomitant]
     Active Substance: NAPROXEN
     Indication: MIGRAINE PROPHYLAXIS
     Dosage: UNK UNK, BID
     Dates: start: 201810, end: 201901
  4. AIMOVIG [Suspect]
     Active Substance: ERENUMAB-AOOE
     Indication: MIGRAINE PROPHYLAXIS
     Dosage: 140 MILLIGRAM, QMO
     Route: 065
     Dates: start: 20181007

REACTIONS (5)
  - Musculoskeletal disorder [Unknown]
  - Pelvic fracture [Recovered/Resolved]
  - Fall [Unknown]
  - Impaired healing [Unknown]
  - Drug effect incomplete [Unknown]

NARRATIVE: CASE EVENT DATE: 2018
